FAERS Safety Report 17294411 (Version 1)
Quarter: 2020Q1

REPORT INFORMATION
  Report Type: Spontaneous
  Country: US (occurrence: US)
  Receive Date: 20200102
  Receipt Date: 20200102
  Transmission Date: 20200409
  Serious: Yes (Other)
  Sender: FDA-Public Use
  Company Number: None

PATIENT
  Age: 50 Year
  Sex: Female

DRUGS (2)
  1. MOMETASONE FUROATE 50MCG [Suspect]
     Active Substance: MOMETASONE FUROATE
     Indication: RHINITIS
     Dosage: 2 SPRAYS IN EACH NOSTRIL
  2. AZELASTINE 137MCG/INH [Suspect]
     Active Substance: AZELASTINE
     Indication: RHINITIS
     Dosage: 1-2 SPRAYS IN EACH NOSTRIL

REACTIONS (4)
  - Erythema [None]
  - Swelling face [None]
  - Epistaxis [None]
  - Sinus disorder [None]
